FAERS Safety Report 5091049-7 (Version None)
Quarter: 2006Q3

REPORT INFORMATION
  Report Type: 
  Country: None (occurrence: None)
  Receive Date: 20060829
  Receipt Date: 20051223
  Transmission Date: 20061208
  Serious: No
  Sender: FDA-Public Use
  Company Number: CIP05002298

PATIENT
  Age: 56 Year
  Sex: Female
  Weight: 56.8 kg

DRUGS (3)
  1. ZOVIRAX [Suspect]
     Indication: DRUG USE FOR UNKNOWN INDICATION
     Route: 048
  2. ACTONEL [Suspect]
     Indication: OSTEOPENIA
     Dosage: 35MG SINGLE DOSE
     Route: 048
  3. ALLEGRA [Suspect]
     Indication: DRUG USE FOR UNKNOWN INDICATION
     Route: 048

REACTIONS (4)
  - ERYTHEMA [None]
  - HYPERSENSITIVITY [None]
  - PRURITUS [None]
  - RASH [None]
